FAERS Safety Report 6149032-6 (Version None)
Quarter: 2009Q2

REPORT INFORMATION
  Report Type: 
  Country: None (occurrence: None)
  Receive Date: 20090406
  Receipt Date: 20090325
  Transmission Date: 20091009
  Serious: Yes (Hospitalization)
  Sender: FDA-Public Use
  Company Number: 200903IM000084

PATIENT
  Sex: Male
  Weight: 13 kg

DRUGS (1)
  1. ACTIMMUNE [Suspect]
     Indication: CHRONIC GRANULOMATOUS DISEASE
     Dosage: CHRONIC GRANULOMATOUS DISEASE [10008906 - CHRONIC GRANULOMATOUS DISEASE]
     Dates: start: 20061116

REACTIONS (2)
  - ABDOMINAL PAIN [None]
  - LIVER ABSCESS [None]
